FAERS Safety Report 11557907 (Version 1)
Quarter: 2015Q3

REPORT INFORMATION
  Report Type: Spontaneous
  Country: FR (occurrence: FR)
  Receive Date: 20150928
  Receipt Date: 20150928
  Transmission Date: 20151125
  Serious: Yes (Hospitalization)
  Sender: FDA-Public Use
  Company Number: FR-ROCHE-1637969

PATIENT
  Age: 60 Year
  Sex: Female

DRUGS (6)
  1. AVASTIN [Suspect]
     Active Substance: BEVACIZUMAB
     Indication: LUNG ADENOCARCINOMA
     Dosage: 25MG/ML
     Route: 041
     Dates: start: 20131008
  2. AVASTIN [Suspect]
     Active Substance: BEVACIZUMAB
     Dosage: MAINTAINANCE THERAPY
     Route: 041
     Dates: start: 20140326
  3. PACLITAXEL. [Suspect]
     Active Substance: PACLITAXEL
     Indication: LUNG ADENOCARCINOMA
     Dosage: 6 MG/ML
     Route: 041
     Dates: start: 20131008, end: 20140212
  4. ALIMTA [Suspect]
     Active Substance: PEMETREXED DISODIUM
     Indication: LUNG ADENOCARCINOMA
     Route: 041
     Dates: start: 20130123, end: 20130327
  5. AVASTIN [Suspect]
     Active Substance: BEVACIZUMAB
     Route: 041
     Dates: start: 20150408
  6. CARBOPLATINE [Suspect]
     Active Substance: CARBOPLATIN
     Indication: LUNG ADENOCARCINOMA
     Dosage: 10MG/ML
     Route: 041
     Dates: start: 20131008, end: 20140212

REACTIONS (2)
  - Cardiomyopathy [Not Recovered/Not Resolved]
  - Bundle branch block left [Not Recovered/Not Resolved]

NARRATIVE: CASE EVENT DATE: 201504
